FAERS Safety Report 16443381 (Version 1)
Quarter: 2019Q2

REPORT INFORMATION
  Report Type: Spontaneous
  Country: US (occurrence: US)
  Receive Date: 20190618
  Receipt Date: 20190618
  Transmission Date: 20190711
  Serious: No
  Sender: FDA-Public Use
  Company Number: US-009507513-1906USA004959

PATIENT
  Sex: Male

DRUGS (1)
  1. SIVEXTRO [Suspect]
     Active Substance: TEDIZOLID PHOSPHATE
     Indication: POSTOPERATIVE WOUND INFECTION
     Dosage: 200 MILLIGRAM, DAILY
     Route: 048

REACTIONS (2)
  - Asthenia [Recovered/Resolved]
  - Muscle fatigue [Recovered/Resolved]
